FAERS Safety Report 15990377 (Version 1)
Quarter: 2019Q1

REPORT INFORMATION
  Report Type: Spontaneous
  Country: US (occurrence: US)
  Receive Date: 20190125
  Receipt Date: 20190125
  Transmission Date: 20190418
  Serious: No
  Sender: FDA-Public Use
  Company Number: None

PATIENT
  Age: 64 Year
  Sex: Female
  Weight: 99.79 kg

DRUGS (1)
  1. STELARA [Suspect]
     Active Substance: USTEKINUMAB
     Indication: PSORIASIS
     Dosage: INJECT 90MG  SUBCUTANEOUSLY AT  WEEK 0 AND WEEK 4  AS DIRECTED?
     Route: 058
     Dates: start: 201710

REACTIONS (4)
  - Pain in extremity [None]
  - Hypoaesthesia [None]
  - Knee arthroplasty [None]
  - Arterial occlusive disease [None]
